FAERS Safety Report 17190400 (Version 2)
Quarter: 2020Q4

REPORT INFORMATION
  Report Type: Other
  Country: GB (occurrence: GB)
  Receive Date: 20191223
  Receipt Date: 20201001
  Transmission Date: 20210113
  Serious: No
  Sender: FDA-Public Use
  Company Number: GB-LUPIN PHARMACEUTICALS INC.-2019-06629

PATIENT
  Age: 24 Year
  Sex: Female
  Weight: 55 kg

DRUGS (6)
  1. HYDROXOCOBALAMIN [Concomitant]
     Active Substance: HYDROXOCOBALAMIN
     Indication: ILL-DEFINED DISORDER
     Dosage: UNK (USE AS DIRECTED)
     Route: 065
     Dates: start: 20181003
  2. CEPHALEXIN CAPSULES [Suspect]
     Active Substance: CEPHALEXIN
     Indication: PRODUCT USED FOR UNKNOWN INDICATION
     Dosage: 1 DOSAGE FORM, TID (500 MILLIGRAM)
     Route: 065
     Dates: start: 20190814
  3. EFLORNITHINE [Concomitant]
     Active Substance: EFLORNITHINE
     Indication: ILL-DEFINED DISORDER
     Dosage: UNK UNK, BID
     Route: 065
     Dates: start: 20190610, end: 20190617
  4. TRIMETHOPRIM. [Concomitant]
     Active Substance: TRIMETHOPRIM
     Indication: ILL-DEFINED DISORDER
     Dosage: 1 DOSAGE FORM, BID
     Route: 065
     Dates: start: 20190815
  5. NITROFURANTOIN. [Concomitant]
     Active Substance: NITROFURANTOIN
     Indication: ILL-DEFINED DISORDER
     Dosage: 1 DOSAGE FORM, BID (FOR 3 DAYS, TO TREAT INFEC)
     Route: 065
     Dates: start: 20190808, end: 20190811
  6. SALBUTAMOL [Concomitant]
     Active Substance: ALBUTEROL
     Indication: ILL-DEFINED DISORDER
     Dosage: UNK UNK, QID (TWO PUFFS FOUR TIMES A DAY)
     Route: 065
     Dates: start: 20150709

REACTIONS (1)
  - Rash pruritic [Recovered/Resolved]

NARRATIVE: CASE EVENT DATE: 20190816
